FAERS Safety Report 16198179 (Version 3)
Quarter: 2020Q3

REPORT INFORMATION
  Report Type: Spontaneous
  Country: US (occurrence: US)
  Receive Date: 20190415
  Receipt Date: 20200803
  Transmission Date: 20201102
  Serious: Yes (Hospitalization)
  Sender: FDA-Public Use
  Company Number: US-PFIZER INC-2018466227

PATIENT
  Age: 37 Year
  Sex: Female

DRUGS (5)
  1. NORTRIPTYLINE [Concomitant]
     Active Substance: NORTRIPTYLINE
     Indication: MIGRAINE
     Dosage: 10 MG, 1X/DAY (EVERY NIGHT AT BED TIME)
     Route: 048
     Dates: start: 1995
  2. PREMARIN [Suspect]
     Active Substance: ESTROGENS, CONJUGATED
     Indication: CERVIX CARCINOMA
     Dosage: 0.625 MG, CYCLIC (ONCE A DAY FOR 90 DAYS AND THEN 5 DAY BREAK)
     Route: 048
     Dates: start: 199009
  3. PREMARIN [Suspect]
     Active Substance: ESTROGENS, CONJUGATED
     Dosage: 0.625 MG, DAILY(QTY: 90)
     Route: 048
  4. ATENOLOL. [Concomitant]
     Active Substance: ATENOLOL
     Indication: HYPERTENSION
     Dosage: 50 MG, 1X/DAY (ONCE EVERY MORNING)
     Route: 048
     Dates: start: 2010
  5. PREMARIN [Suspect]
     Active Substance: ESTROGENS, CONJUGATED
     Dosage: 0.625 MG, CYCLIC (ONCE A DAY FOR 90 DAYS AND THEN 5 DAY BREAK)
     Route: 048

REACTIONS (4)
  - Product use in unapproved indication [Unknown]
  - Drug effective for unapproved indication [Unknown]
  - Off label use [Unknown]
  - Malaise [Not Recovered/Not Resolved]

NARRATIVE: CASE EVENT DATE: 199009
